FAERS Safety Report 4616101-9 (Version None)
Quarter: 2005Q1

REPORT INFORMATION
  Report Type: 
  Country: None (occurrence: None)
  Receive Date: 20050323
  Receipt Date: 20050224
  Transmission Date: 20050727
  Serious: Yes (Other)
  Sender: FDA-Public Use
  Company Number: US-KINGPHARMUSA00001-K200500278

PATIENT

DRUGS (1)
  1. SEPTRA IV INFUSION [Suspect]
     Indication: OPPORTUNISTIC INFECTION
     Dosage: 2.88G  BID
     Route: 042

REACTIONS (1)
  - CARDIAC FAILURE [None]
